FAERS Safety Report 24762986 (Version 1)
Quarter: 2024Q4

REPORT INFORMATION
  Report Type: Spontaneous
  Country: JP (occurrence: JP)
  Receive Date: 20241222
  Receipt Date: 20241222
  Transmission Date: 20250115
  Serious: Yes (Hospitalization)
  Sender: ARDELYX
  Company Number: JP-ARDELYX-2024ARDX009038

PATIENT
  Age: 7 Decade
  Sex: Female

DRUGS (3)
  1. TENAPANOR HYDROCHLORIDE [Suspect]
     Active Substance: TENAPANOR HYDROCHLORIDE
     Indication: Hyperphosphataemia
     Dosage: 10 MILLIGRAM, BID
     Route: 048
  2. TENAPANOR HYDROCHLORIDE [Suspect]
     Active Substance: TENAPANOR HYDROCHLORIDE
     Dosage: UNK
     Route: 048
  3. TENAPANOR HYDROCHLORIDE [Suspect]
     Active Substance: TENAPANOR HYDROCHLORIDE
     Dosage: 5 MILLIGRAM, BID
     Route: 048

REACTIONS (4)
  - Hospitalisation [Unknown]
  - Diarrhoea [Unknown]
  - Diarrhoea [Unknown]
  - Off label use [Unknown]
